FAERS Safety Report 6311385-3 (Version None)
Quarter: 2009Q3

REPORT INFORMATION
  Report Type: 
  Country: None (occurrence: None)
  Receive Date: 20090817
  Receipt Date: 20090806
  Transmission Date: 20100115
  Serious: Yes (Hospitalization)
  Sender: FDA-Public Use
  Company Number: FR-BAYER-200927767GPV

PATIENT
  Age: 37 Year
  Sex: Female

DRUGS (15)
  1. IZILOX [Suspect]
     Indication: DISSEMINATED TUBERCULOSIS
     Dosage: TOTAL DAILY DOSE: 400 MG  UNIT DOSE: 400 MG
     Route: 048
     Dates: start: 20090525, end: 20090529
  2. RIFADIN [Suspect]
     Indication: DISSEMINATED TUBERCULOSIS
     Dosage: TOTAL DAILY DOSE: 300 MG  UNIT DOSE: 300 MG
     Route: 048
     Dates: start: 20090525, end: 20090529
  3. RIFADIN [Suspect]
     Dosage: TOTAL DAILY DOSE: 600 MG  UNIT DOSE: 600 MG
     Route: 048
     Dates: start: 20090503, end: 20090501
  4. MYAMBUTOL [Suspect]
     Indication: DISSEMINATED TUBERCULOSIS
     Dosage: TOTAL DAILY DOSE: 1200 MG  UNIT DOSE: 400 MG
     Route: 048
     Dates: start: 20090525, end: 20090529
  5. MYAMBUTOL [Suspect]
     Dosage: TOTAL DAILY DOSE: 1200 MG  UNIT DOSE: 400 MG
     Route: 048
     Dates: start: 20090425, end: 20090501
  6. RIMIFON [Concomitant]
     Indication: DISSEMINATED TUBERCULOSIS
     Dosage: TOTAL DAILY DOSE: 300 MG  UNIT DOSE: 150 MG
     Dates: start: 20090425
  7. ANSATIPIN [Concomitant]
     Indication: DISSEMINATED TUBERCULOSIS
     Dosage: TOTAL DAILY DOSE: 150 MG  UNIT DOSE: 150 MG
     Dates: start: 20090425, end: 20090503
  8. PIRILENE [Concomitant]
     Indication: DISSEMINATED TUBERCULOSIS
     Dosage: TOTAL DAILY DOSE: 450 MG  UNIT DOSE: 150 MG
     Dates: start: 20090425
  9. ZECLAR [Concomitant]
     Indication: DISSEMINATED TUBERCULOSIS
     Dates: start: 20090425, end: 20090503
  10. BACTRIM [Concomitant]
     Indication: INFECTION PROPHYLAXIS
     Dosage: 1-0-0
     Dates: start: 20090425
  11. IMOVANE [Concomitant]
     Dates: start: 20090427
  12. SUSTIVA [Concomitant]
     Indication: ACQUIRED IMMUNODEFICIENCY SYNDROME
     Dosage: 0-0-1
     Dates: start: 20090505
  13. TRUVADA [Concomitant]
     Indication: ACQUIRED IMMUNODEFICIENCY SYNDROME
     Dosage: 0-0-1
     Dates: start: 20090505
  14. FUZEON [Concomitant]
     Indication: ACQUIRED IMMUNODEFICIENCY SYNDROME
     Dosage: 1-0-1
     Dates: start: 20090505
  15. SINGULAIR [Concomitant]
     Indication: INFLAMMATION
     Dates: start: 20090511

REACTIONS (7)
  - CHOLESTASIS [None]
  - CYTOLYTIC HEPATITIS [None]
  - HEPATIC ENCEPHALOPATHY [None]
  - HEPATITIS FULMINANT [None]
  - JAUNDICE [None]
  - METABOLIC ACIDOSIS [None]
  - TACHYPNOEA [None]
